FAERS Safety Report 7360587-6 (Version None)
Quarter: 2011Q1

REPORT INFORMATION
  Report Type: 
  Country: None (occurrence: None)
  Receive Date: 20110309
  Receipt Date: 20110221
  Transmission Date: 20110831
  Serious: Yes (Hospitalization, Other)
  Sender: FDA-Public Use
  Company Number: 2011MA001608

PATIENT
  Age: 50 Year
  Sex: Female

DRUGS (1)
  1. METFORMIN HYDROCHLORIDE [Suspect]
     Indication: SUICIDE ATTEMPT
     Dosage: 34000 MG;U;PO
     Route: 048

REACTIONS (7)
  - LACTIC ACIDOSIS [None]
  - TACHYPNOEA [None]
  - SOPOR [None]
  - BLOOD PRESSURE DECREASED [None]
  - BLOOD GLUCOSE DECREASED [None]
  - PLEURAL EFFUSION [None]
  - THYROID NEOPLASM [None]
